FAERS Safety Report 19217048 (Version 1)
Quarter: 2021Q2

REPORT INFORMATION
  Report Type: Spontaneous
  Country: CA (occurrence: CA)
  Receive Date: 20210505
  Receipt Date: 20210505
  Transmission Date: 20210717
  Serious: Yes (Other)
  Sender: FDA-Public Use
  Company Number: CA-TEVA-2021-CA-1907428

PATIENT
  Age: 22 Year
  Sex: Female

DRUGS (5)
  1. LATUDA [Suspect]
     Active Substance: LURASIDONE HYDROCHLORIDE
     Indication: PRODUCT USED FOR UNKNOWN INDICATION
     Route: 048
  2. ATIVAN [Suspect]
     Active Substance: LORAZEPAM
     Indication: PRODUCT USED FOR UNKNOWN INDICATION
     Route: 048
  3. LAMOTRIGINE. [Suspect]
     Active Substance: LAMOTRIGINE
     Indication: PRODUCT USED FOR UNKNOWN INDICATION
     Dosage: 200 MILLIGRAM DAILY;
     Route: 048
  4. QUETIAPINE. [Suspect]
     Active Substance: QUETIAPINE
     Indication: PRODUCT USED FOR UNKNOWN INDICATION
     Dosage: 25 MILLIGRAM DAILY;
     Route: 048
  5. LATUDA [Suspect]
     Active Substance: LURASIDONE HYDROCHLORIDE
     Route: 048

REACTIONS (3)
  - Throat tightness [Not Recovered/Not Resolved]
  - Apnoea [Not Recovered/Not Resolved]
  - Dyspnoea [Not Recovered/Not Resolved]
